FAERS Safety Report 5010088-5 (Version None)
Quarter: 2006Q2

REPORT INFORMATION
  Report Type: 
  Country: None (occurrence: None)
  Receive Date: 20060404
  Receipt Date: 20051202
  Transmission Date: 20061013
  Serious: No
  Sender: FDA-Public Use
  Company Number: US200511001579

PATIENT
  Age: 55 Year
  Sex: Female

DRUGS (3)
  1. CYMBALTA [Suspect]
     Indication: DEPRESSION
     Dosage: 30 MG, 2/D, ORAL
     Route: 048
     Dates: start: 20051001
  2. WELLBUTRIN [Concomitant]
  3. THYROID TAB [Concomitant]

REACTIONS (8)
  - BURNING SENSATION [None]
  - CRYING [None]
  - DISSOCIATION [None]
  - FEELING ABNORMAL [None]
  - GINGIVAL BLEEDING [None]
  - MENTAL IMPAIRMENT [None]
  - PRURITUS GENERALISED [None]
  - SKIN BURNING SENSATION [None]
